FAERS Safety Report 7424591-1 (Version None)
Quarter: 2011Q2

REPORT INFORMATION
  Report Type: 
  Country: None (occurrence: None)
  Receive Date: 20110419
  Receipt Date: 20110413
  Transmission Date: 20111010
  Serious: Yes (Other)
  Sender: FDA-Public Use
  Company Number: DE-BAXTER-2011BH011348

PATIENT
  Age: 64 Year
  Sex: Female

DRUGS (6)
  1. EPIRUBICIN HYDROCHLORIDE [Suspect]
     Indication: BREAST CANCER
     Route: 042
     Dates: start: 20110201
  2. CYCLOPHOSPHAMIDE [Suspect]
     Indication: BREAST CANCER
     Route: 042
     Dates: start: 20110201
  3. UROMITEXAN BAXTER [Suspect]
     Indication: PROPHYLAXIS
     Route: 042
     Dates: start: 20110201
  4. UROMITEXAN BAXTER [Suspect]
     Route: 048
     Dates: start: 20110201
  5. UROMITEXAN BAXTER [Suspect]
     Route: 048
     Dates: start: 20110201
  6. FLUOROURACIL [Suspect]
     Indication: BREAST CANCER
     Route: 042
     Dates: start: 20110201

REACTIONS (1)
  - GLOMERULAR FILTRATION RATE DECREASED [None]
